FAERS Safety Report 23951504 (Version 2)
Quarter: 2024Q3

REPORT INFORMATION
  Report Type: Spontaneous
  Country: US (occurrence: US)
  Receive Date: 20240607
  Receipt Date: 20240725
  Transmission Date: 20241017
  Serious: Yes (Other)
  Sender: CALLIDITAS THERAPEUTICS
  Company Number: US-Calliditas-2024CAL00942

PATIENT
  Age: 32 Year
  Sex: Female

DRUGS (5)
  1. TARPEYO [Suspect]
     Active Substance: BUDESONIDE
     Indication: IgA nephropathy
     Route: 048
     Dates: start: 20240503
  2. TUMS [Concomitant]
     Active Substance: CALCIUM CARBONATE
  3. LOSARTAN [Concomitant]
     Active Substance: LOSARTAN
  4. HYDRALAZINE [Concomitant]
     Active Substance: HYDRALAZINE HYDROCHLORIDE
  5. TORSEMIDE [Concomitant]
     Active Substance: TORSEMIDE

REACTIONS (8)
  - End stage renal disease [Unknown]
  - Peritoneal dialysis [Unknown]
  - Chest discomfort [Unknown]
  - Dyspnoea [Unknown]
  - Swelling face [Unknown]
  - Blood pressure increased [Unknown]
  - Swelling [Unknown]
  - Muscle spasms [Unknown]
